FAERS Safety Report 14393105 (Version 1)
Quarter: 2018Q1

REPORT INFORMATION
  Report Type: Spontaneous
  Country: US (occurrence: US)
  Receive Date: 20180113
  Receipt Date: 20180113
  Transmission Date: 20180509
  Serious: Yes (Other)
  Sender: FDA-Public Use
  Company Number: None

PATIENT
  Sex: Female
  Weight: 27 kg

DRUGS (3)
  1. OSELTAMIVIR PHOSPHATE. [Suspect]
     Active Substance: OSELTAMIVIR PHOSPHATE
     Indication: INFLUENZA
     Dosage: ?          QUANTITY:10 ML;?
     Route: 048
     Dates: start: 20180112, end: 20180112
  2. IBUPROFEN. [Concomitant]
     Active Substance: IBUPROFEN
  3. CHILDREN^S MULTIVITAMIN [Concomitant]

REACTIONS (3)
  - Hallucination, visual [None]
  - Palpitations [None]
  - Confusional state [None]

NARRATIVE: CASE EVENT DATE: 20180112
